FAERS Safety Report 11360502 (Version 3)
Quarter: 2016Q3

REPORT INFORMATION
  Report Type: Report from Study
  Country: US (occurrence: US)
  Receive Date: 20150810
  Receipt Date: 20160721
  Transmission Date: 20161109
  Serious: Yes (Other)
  Sender: FDA-Public Use
  Company Number: PHEH2015US005389

PATIENT
  Age: 37 Year
  Sex: Male

DRUGS (4)
  1. EXTAVIA [Suspect]
     Active Substance: INTERFERON BETA-1B
     Indication: MULTIPLE SCLEROSIS
     Dosage: WEEKS 1-2: 0.062 MG, QOD (0.25 ML IN 1 TO 2 WEEK)
     Route: 058
     Dates: start: 20150312
  2. EXTAVIA [Suspect]
     Active Substance: INTERFERON BETA-1B
     Dosage: WEEKS 5-6:0.1875 MG (0.75 ML), QOD
     Route: 058
  3. EXTAVIA [Suspect]
     Active Substance: INTERFERON BETA-1B
     Dosage: WEEKS 3-4: 0.125 MG (0.5 ML), QOD
     Route: 058
  4. EXTAVIA [Suspect]
     Active Substance: INTERFERON BETA-1B
     Dosage: WEEKS 7+: 0.25 MG (1 ML), QOD
     Route: 058

REACTIONS (7)
  - Central nervous system lesion [Unknown]
  - Injection site pain [Recovered/Resolved]
  - Injection site erythema [Unknown]
  - Drug prescribing error [Unknown]
  - Incorrect product storage [Unknown]
  - Injection site pain [Unknown]
  - Injection site mass [Unknown]

NARRATIVE: CASE EVENT DATE: 20150312
